FAERS Safety Report 4549473-4 (Version None)
Quarter: 2005Q1

REPORT INFORMATION
  Report Type: 
  Country: None (occurrence: None)
  Receive Date: 20050110
  Receipt Date: 20050110
  Transmission Date: 20050727
  Serious: Yes (Hospitalization)
  Sender: FDA-Public Use
  Company Number: None

PATIENT
  Age: 85 Year
  Sex: Female
  Weight: 59.8748 kg

DRUGS (9)
  1. BACTRIM DS [Suspect]
     Indication: URINARY TRACT INFECTION
     Dosage: 1 TABLET TWICE DAILY ORAL
     Route: 048
     Dates: start: 20041223, end: 20050102
  2. LISINOPRIL [Suspect]
     Indication: DIABETES MELLITUS
     Dosage: 2 TABLETS DAILY ORAL
     Route: 048
     Dates: start: 19980120, end: 20050107
  3. LISINOPRIL [Suspect]
     Indication: PROPHYLAXIS
     Dosage: 2 TABLETS DAILY ORAL
     Route: 048
     Dates: start: 19980120, end: 20050107
  4. ESTRADIOL VAGINAL CREAM [Concomitant]
  5. HYDROCHLOROTHIAZIDE [Concomitant]
  6. LEVOTHYROXINE SODIUM [Concomitant]
  7. NIFEDIPINE [Concomitant]
  8. CYANOCOBALAMIN [Concomitant]
  9. COLCHICINE [Concomitant]

REACTIONS (3)
  - HYPERKALAEMIA [None]
  - HYPERTENSION [None]
  - URINARY TRACT INFECTION [None]
